FAERS Safety Report 7464545-2 (Version None)
Quarter: 2011Q2

REPORT INFORMATION
  Report Type: 
  Country: None (occurrence: None)
  Receive Date: 20110428
  Receipt Date: 20110412
  Transmission Date: 20111010
  Serious: Yes (Death)
  Sender: FDA-Public Use
  Company Number: JPI-P-014593

PATIENT
  Age: 56 Year
  Sex: Female

DRUGS (4)
  1. XYREM [Suspect]
     Indication: FIBROMYALGIA
     Dosage: 4.5, 9  GM (2.25, 4.5 GM, 2 IN 1 D), ORAL
     Route: 048
     Dates: start: 20090930, end: 20110329
  2. XYREM [Suspect]
     Indication: LYME DISEASE
     Dosage: 4.5, 9  GM (2.25, 4.5 GM, 2 IN 1 D), ORAL
     Route: 048
     Dates: start: 20090930, end: 20110329
  3. XYREM [Suspect]
     Indication: FIBROMYALGIA
     Dosage: 4.5, 9  GM (2.25, 4.5 GM, 2 IN 1 D), ORAL
     Route: 048
     Dates: start: 20060519
  4. XYREM [Suspect]
     Indication: LYME DISEASE
     Dosage: 4.5, 9  GM (2.25, 4.5 GM, 2 IN 1 D), ORAL
     Route: 048
     Dates: start: 20060519

REACTIONS (2)
  - POOR QUALITY SLEEP [None]
  - INTENTIONAL DRUG MISUSE [None]
